FAERS Safety Report 25722450 (Version 2)
Quarter: 2025Q3

REPORT INFORMATION
  Report Type: Spontaneous
  Country: EU (occurrence: EU)
  Receive Date: 20250825
  Receipt Date: 20250908
  Transmission Date: 20251021
  Serious: Yes (Other)
  Sender: GRIFOLS
  Company Number: None

PATIENT
  Age: 57 Year
  Sex: Male

DRUGS (2)
  1. PROLASTIN [Suspect]
     Active Substance: .ALPHA.1-PROTEINASE INHIBITOR HUMAN
     Indication: Alpha-1 antitrypsin deficiency
     Dosage: PROLASTIN*1 IV VIAL 1,000 MG + 1 SOLVENT VIAL 40 ML: 4 VIALS/WEEK
     Route: 042
     Dates: start: 20250711, end: 20250801
  2. PROLASTIN [Suspect]
     Active Substance: .ALPHA.1-PROTEINASE INHIBITOR HUMAN
     Dosage: PROLASTIN*1 IV VIAL 1,000 MG + 1 SOLVENT VIAL 40 ML: 4 VIALS/WEEK
     Route: 042
     Dates: start: 20250711, end: 20250801

REACTIONS (6)
  - Malaise [Recovering/Resolving]
  - Fatigue [Recovering/Resolving]
  - Dizziness [Recovering/Resolving]
  - Muscular weakness [Recovering/Resolving]
  - Fall [Recovered/Resolved with Sequelae]
  - Patella fracture [Not Recovered/Not Resolved]

NARRATIVE: CASE EVENT DATE: 20250712
